FAERS Safety Report 8613081-6 (Version None)
Quarter: 2012Q3

REPORT INFORMATION
  Report Type: 
  Country: None (occurrence: None)
  Receive Date: 20120822
  Receipt Date: 20120810
  Transmission Date: 20120928
  Serious: Yes (Other)
  Sender: FDA-Public Use
  Company Number: JP-VERTEX PHARMACEUTICAL INC.-2012-019704

PATIENT
  Age: 69 Year
  Sex: Female

DRUGS (7)
  1. RIBAVIRIN [Suspect]
     Dosage: 400 UNK, UNK
     Route: 048
     Dates: start: 20120703, end: 20120709
  2. PEGINTERFERON ALFA-2B [Suspect]
     Indication: HEPATITIS C
     Dosage: 1.5 A?G/KG, UNK
     Dates: start: 20120619, end: 20120625
  3. VX-950 [Suspect]
     Indication: HEPATITIS C
     Dosage: 1500 MG, QD
     Route: 048
     Dates: start: 20120619, end: 20120709
  4. RIBAVIRIN [Suspect]
     Dosage: 200 UNK, UNK
     Route: 048
     Dates: start: 20120725
  5. RIBAVIRIN [Suspect]
     Indication: HEPATITIS C
     Dosage: 600 MG, QD
     Route: 048
     Dates: start: 20120619, end: 20120702
  6. PEGINTERFERON ALFA-2B [Suspect]
     Dosage: 0.8 A?G/KG, UNK
     Route: 058
     Dates: start: 20120626, end: 20120724
  7. PEGINTERFERON ALFA-2B [Suspect]
     Dosage: 1.0 A?G/KG, UNK
     Route: 058
     Dates: start: 20120725

REACTIONS (2)
  - WHITE BLOOD CELL COUNT DECREASED [None]
  - NEUTROPHIL COUNT DECREASED [None]
